FAERS Safety Report 11776823 (Version 1)
Quarter: 2015Q4

REPORT INFORMATION
  Report Type: Spontaneous
  Country: US (occurrence: US)
  Receive Date: 20151125
  Receipt Date: 20151125
  Transmission Date: 20160304
  Serious: No
  Sender: FDA-Public Use
  Company Number: US-009507513-1511USA011706

PATIENT
  Age: 37 Year
  Sex: Female
  Weight: 72.56 kg

DRUGS (1)
  1. NEXPLANON [Suspect]
     Active Substance: ETONOGESTREL
     Indication: CONTRACEPTION
     Dosage: 1 ROD UP TO 3 YEARS
     Route: 059
     Dates: start: 20150626

REACTIONS (5)
  - Alopecia [Unknown]
  - Menorrhagia [Unknown]
  - Muscle spasms [Unknown]
  - Headache [Unknown]
  - Stress [Unknown]

NARRATIVE: CASE EVENT DATE: 201507
